FAERS Safety Report 19056733 (Version 1)
Quarter: 2021Q1

REPORT INFORMATION
  Report Type: Spontaneous
  Country: US (occurrence: US)
  Receive Date: 20210325
  Receipt Date: 20210325
  Transmission Date: 20210420
  Serious: Yes (Life-Threatening, Hospitalization)
  Sender: FDA-Public Use
  Company Number: US-MYLANLABS-2021M1017650

PATIENT
  Age: 9 Year
  Sex: Male
  Weight: 32.5 kg

DRUGS (1)
  1. METHADONE [Suspect]
     Active Substance: METHADONE HYDROCHLORIDE
     Indication: PRODUCT USED FOR UNKNOWN INDICATION
     Dosage: HE ADMITTED TO TAKING PILLS, PRESUMED TO BE OF METHADONE
     Route: 065

REACTIONS (10)
  - Posterior reversible encephalopathy syndrome [Unknown]
  - Electrocardiogram QT prolonged [Recovered/Resolved]
  - Hypertension [Recovered/Resolved]
  - Brain oedema [Unknown]
  - Ataxia [Recovered/Resolved]
  - Encephalitis [Recovering/Resolving]
  - Intracranial pressure increased [Unknown]
  - Bradycardia [Unknown]
  - Toxicity to various agents [Recovering/Resolving]
  - Respiratory failure [Recovered/Resolved]
